FAERS Safety Report 22517815 (Version 1)
Quarter: 2023Q2

REPORT INFORMATION
  Report Type: Report from Study
  Country: US (occurrence: US)
  Receive Date: 20230604
  Receipt Date: 20230604
  Transmission Date: 20230722
  Serious: Yes (Congenital Anomaly)
  Sender: FDA-Public Use
  Company Number: US-ABBVIE-5188150

PATIENT
  Sex: Male

DRUGS (5)
  1. NORVIR [Suspect]
     Active Substance: RITONAVIR
     Indication: Maternal exposure timing unspecified
     Route: 064
  2. DARUNAVIR [Concomitant]
     Active Substance: DARUNAVIR
     Indication: Maternal exposure timing unspecified
     Route: 064
  3. RALTEGRAVIR [Concomitant]
     Active Substance: RALTEGRAVIR
     Indication: Maternal exposure timing unspecified
     Route: 064
  4. DOLUTEGRAVIR [Concomitant]
     Active Substance: DOLUTEGRAVIR
     Indication: Maternal exposure timing unspecified
     Route: 064
  5. ABACAVIR\LAMIVUDINE [Concomitant]
     Active Substance: ABACAVIR\LAMIVUDINE
     Indication: Maternal exposure timing unspecified
     Route: 064

REACTIONS (2)
  - Thalassaemia beta [Unknown]
  - Foetal exposure during pregnancy [Unknown]
